FAERS Safety Report 25120919 (Version 2)
Quarter: 2025Q2

REPORT INFORMATION
  Report Type: Spontaneous
  Country: US (occurrence: US)
  Receive Date: 20250325
  Receipt Date: 20250502
  Transmission Date: 20250716
  Serious: No
  Sender: ABBVIE
  Company Number: US-ABBVIE-6188578

PATIENT
  Age: 56 Year
  Sex: Female
  Weight: 71 kg

DRUGS (3)
  1. SYNTHROID [Suspect]
     Active Substance: LEVOTHYROXINE SODIUM
     Indication: Product used for unknown indication
     Dosage: PILLS, 75
     Route: 048
     Dates: start: 202412, end: 202502
  2. SYNTHROID [Suspect]
     Active Substance: LEVOTHYROXINE SODIUM
     Indication: Product used for unknown indication
     Dosage: PATIENT USED TO TAKE 88 PER DAY BUT NOW HAVE BEEN ALTERNATING, FIRST ADMIN DATE: 2025
     Route: 048
  3. SYNTHROID [Suspect]
     Active Substance: LEVOTHYROXINE SODIUM
     Indication: Product used for unknown indication
     Route: 048
     Dates: start: 2015

REACTIONS (8)
  - Blood thyroid stimulating hormone abnormal [Not Recovered/Not Resolved]
  - Weight increased [Unknown]
  - Blood thyroid stimulating hormone decreased [Not Recovered/Not Resolved]
  - Lactose intolerance [Unknown]
  - Osteoporosis [Unknown]
  - Bone density decreased [Unknown]
  - Fatigue [Unknown]
  - Ocular discomfort [Unknown]

NARRATIVE: CASE EVENT DATE: 20241201
